FAERS Safety Report 6488032-3 (Version None)
Quarter: 2009Q4

REPORT INFORMATION
  Report Type: 
  Country: None (occurrence: None)
  Receive Date: 20091210
  Receipt Date: 20091204
  Transmission Date: 20100525
  Serious: Yes (Other)
  Sender: FDA-Public Use
  Company Number: PHEH2009US17265

PATIENT
  Sex: Female

DRUGS (2)
  1. FEMARA [Suspect]
     Dosage: UNK, UNK
     Route: 065
     Dates: start: 20091101
  2. ANTIHYPERTENSIVE DRUGS [Concomitant]
     Dosage: UNK, UNK
     Route: 065

REACTIONS (1)
  - ATRIAL FIBRILLATION [None]
